FAERS Safety Report 23988860 (Version 1)
Quarter: 2024Q2

REPORT INFORMATION
  Report Type: Spontaneous
  Country: US (occurrence: US)
  Receive Date: 20240619
  Receipt Date: 20240619
  Transmission Date: 20240716
  Serious: Yes (Other)
  Sender: FDA-Public Use
  Company Number: US-LEO Pharma-371138

PATIENT
  Age: 62 Year
  Sex: Female

DRUGS (2)
  1. ADBRY [Suspect]
     Active Substance: TRALOKINUMAB-LDRM
     Indication: Purpura non-thrombocytopenic
     Route: 058
     Dates: start: 202405
  2. DUPIXENT [Concomitant]
     Active Substance: DUPILUMAB
     Indication: Dermatitis atopic

REACTIONS (3)
  - Vertigo [Unknown]
  - Deafness unilateral [Unknown]
  - Viral labyrinthitis [Unknown]

NARRATIVE: CASE EVENT DATE: 20240530
